FAERS Safety Report 6908234-9 (Version None)
Quarter: 2010Q3

REPORT INFORMATION
  Report Type: 
  Country: None (occurrence: None)
  Receive Date: 20100805
  Receipt Date: 20100730
  Transmission Date: 20110219
  Serious: Yes (Life-Threatening, Hospitalization)
  Sender: FDA-Public Use
  Company Number: MX-ROCHE-703147

PATIENT
  Sex: Female
  Weight: 53 kg

DRUGS (11)
  1. TOCILIZUMAB [Suspect]
     Indication: RHEUMATOID ARTHRITIS
     Dosage: LAST DOSE PRIOR TO SAE: 24 APRIL 2010, DRUG PERMANENTLY DISCONTINUED, FORM: VIAL
     Route: 042
     Dates: start: 20051214, end: 20100603
  2. METHOTREXATE [Suspect]
     Indication: PRODUCT USED FOR UNKNOWN INDICATION
     Dosage: FREQUENCY QS
     Route: 048
     Dates: start: 20031101, end: 20100507
  3. METHOTREXATE [Suspect]
     Route: 048
     Dates: end: 20100603
  4. PREDNISONE [Concomitant]
     Route: 048
     Dates: start: 20031101, end: 20100509
  5. DICLOFENAC [Concomitant]
     Route: 048
     Dates: start: 20031101, end: 20100507
  6. FOLIC ACID [Concomitant]
     Dates: start: 20021201, end: 20100507
  7. METFORMIN HCL [Concomitant]
     Dates: start: 20041001, end: 20100510
  8. ENALAPRIL [Concomitant]
     Dates: start: 20090330, end: 20100510
  9. GLYBURIDE [Concomitant]
     Dates: start: 20090330, end: 20100510
  10. METOPROLOL [Concomitant]
     Dates: start: 20090330, end: 20100510
  11. INSULIN [Concomitant]

REACTIONS (1)
  - MUSCLE NECROSIS [None]
